FAERS Safety Report 9030736 (Version 2)
Quarter: 2013Q1

REPORT INFORMATION
  Report Type: Spontaneous
  Country: US (occurrence: US)
  Receive Date: 20130123
  Receipt Date: 20130314
  Transmission Date: 20140127
  Serious: Yes (Hospitalization, Other)
  Sender: FDA-Public Use
  Company Number: US-ASTRAZENECA-2013SE03781

PATIENT
  Age: 670 Month
  Sex: Female
  Weight: 85.7 kg

DRUGS (10)
  1. SYMBICORT PMDI [Suspect]
     Indication: CHRONIC OBSTRUCTIVE PULMONARY DISEASE
     Dosage: 160/4.5 MCG, 1 PUFF, TWO TIMES A DAY
     Route: 055
     Dates: start: 2009
  2. DALIRESP [Suspect]
     Route: 065
  3. PROAIR [Suspect]
     Route: 065
  4. SINGULAIR [Concomitant]
     Indication: ASTHMA
     Route: 048
     Dates: start: 2003
  5. CLARITIN [Concomitant]
     Indication: MULTIPLE ALLERGIES
     Dosage: DAILY
     Route: 048
     Dates: start: 2012
  6. DUO NEBS [Concomitant]
     Indication: ASTHMA
     Dosage: DAILY
     Route: 048
  7. ATB CIPRO [Concomitant]
  8. PREDNISON [Concomitant]
  9. ADVAIR [Concomitant]
     Dosage: 250/50
     Route: 055
  10. CORTICOSTEROIDS [Concomitant]
     Route: 048

REACTIONS (5)
  - Bronchitis [Recovering/Resolving]
  - Pneumonia [Recovering/Resolving]
  - Computerised tomogram thorax abnormal [Unknown]
  - Memory impairment [Unknown]
  - Off label use [Not Recovered/Not Resolved]
